FAERS Safety Report 5515857-0 (Version None)
Quarter: 2007Q4

REPORT INFORMATION
  Report Type: 
  Country: None (occurrence: None)
  Receive Date: 20071114
  Receipt Date: 20071106
  Transmission Date: 20080405
  Serious: Yes (Life-Threatening)
  Sender: FDA-Public Use
  Company Number: JP-BRISTOL-MYERS SQUIBB COMPANY-13980248

PATIENT
  Age: 50 Year
  Sex: Female

DRUGS (5)
  1. ENDOXAN [Suspect]
     Indication: BONE MARROW CONDITIONING REGIMEN
     Route: 041
     Dates: start: 20070916, end: 20070917
  2. UROMITEXAN [Concomitant]
     Dates: start: 20070916, end: 20070917
  3. PROGRAF [Concomitant]
     Dates: start: 20070918
  4. METHOTREXATE [Concomitant]
     Dosage: IT WAS ALSO GIVEN ON 21SEP07-21SEP07,23SEP07-23SEP07
     Dates: start: 20070926, end: 20070926
  5. ZOVIRAX [Concomitant]
     Dates: start: 20070913, end: 20070928

REACTIONS (1)
  - CARDIAC TAMPONADE [None]
